FAERS Safety Report 10302337 (Version 1)
Quarter: 2014Q3

REPORT INFORMATION
  Report Type: Spontaneous
  Country: US (occurrence: US)
  Receive Date: 20140714
  Receipt Date: 20140714
  Transmission Date: 20150326
  Serious: No
  Sender: FDA-Public Use
  Company Number: US-009507513-1407USA006037

PATIENT
  Age: 64 Year
  Sex: Male

DRUGS (3)
  1. REMERON [Suspect]
     Active Substance: MIRTAZAPINE
     Route: 048
  2. RESTORIL [Concomitant]
     Active Substance: TEMAZEPAM
  3. ATIVAN [Concomitant]
     Active Substance: LORAZEPAM

REACTIONS (4)
  - Incorrect dose administered [Unknown]
  - Underdose [Unknown]
  - Wrong technique in drug usage process [Unknown]
  - Somnolence [Unknown]
